FAERS Safety Report 7968198-6 (Version None)
Quarter: 2011Q4

REPORT INFORMATION
  Report Type: 
  Country: None (occurrence: None)
  Receive Date: 20111207
  Receipt Date: 20111201
  Transmission Date: 20120403
  Serious: Yes (Death, Other)
  Sender: FDA-Public Use
  Company Number: AUR-APL-2011-00719

PATIENT
  Age: 68 Year
  Sex: Male

DRUGS (6)
  1. GABAPENTIN [Suspect]
     Indication: NEURALGIA
     Dosage: 1800 MG (600 MG, 3 IN 1 D), ORAL
     Route: 048
     Dates: start: 20070701, end: 20110210
  2. LENALIDOMIDE [Suspect]
     Indication: MYELOMA RECURRENCE
     Dosage: 25 MG (25 MG, 1 IN 1 D), ORAL
     Route: 048
     Dates: start: 20091001, end: 20100902
  3. FINASTERIDE [Concomitant]
  4. MORPHINE SULFATE [Concomitant]
  5. ENOXAPARIN SODIUM [Concomitant]
  6. DEXAMETHASONE [Concomitant]

REACTIONS (6)
  - NO THERAPEUTIC RESPONSE [None]
  - ACUTE MYELOID LEUKAEMIA [None]
  - MULTIPLE MYELOMA [None]
  - NEOPLASM RECURRENCE [None]
  - MYELODYSPLASTIC SYNDROME [None]
  - THROMBOCYTOPENIA [None]
